FAERS Safety Report 21321483 (Version 1)
Quarter: 2022Q3

REPORT INFORMATION
  Report Type: Spontaneous
  Country: ES (occurrence: ES)
  Receive Date: 20220912
  Receipt Date: 20220912
  Transmission Date: 20221026
  Serious: Yes (Hospitalization)
  Sender: FDA-Public Use
  Company Number: None

PATIENT
  Age: 73 Year
  Sex: Female

DRUGS (12)
  1. DEXAMETHASONE [Suspect]
     Active Substance: DEXAMETHASONE
     Indication: COVID-19
     Route: 042
     Dates: start: 20220816, end: 20220824
  2. ATORVASTATIN CALCIUM [Suspect]
     Active Substance: ATORVASTATIN CALCIUM
     Indication: Dyslipidaemia
     Route: 048
     Dates: start: 20201029
  3. HYDROCORTISONE [Suspect]
     Active Substance: HYDROCORTISONE
     Indication: Pituitary-dependent Cushing^s syndrome
     Route: 048
     Dates: start: 20220511
  4. OMEPRAZOLE [Concomitant]
     Active Substance: OMEPRAZOLE
     Indication: Product used for unknown indication
     Route: 048
     Dates: start: 20201029
  5. ELIQUIS [Concomitant]
     Active Substance: APIXABAN
     Indication: Atrial fibrillation
     Route: 048
     Dates: start: 20210128
  6. METFORMIN HYDROCHLORIDE [Concomitant]
     Active Substance: METFORMIN HYDROCHLORIDE
     Indication: Product used for unknown indication
     Route: 048
     Dates: start: 20220615
  7. MINURIN FLAS [Concomitant]
     Indication: Product used for unknown indication
     Route: 060
     Dates: start: 20220603
  8. LYRICA [Concomitant]
     Active Substance: PREGABALIN
     Indication: Product used for unknown indication
     Route: 048
     Dates: start: 20201222
  9. TRULICITY [Concomitant]
     Active Substance: DULAGLUTIDE
     Indication: Product used for unknown indication
     Route: 058
     Dates: start: 20210309
  10. FOSTER [Concomitant]
     Active Substance: BECLOMETHASONE\FORMOTEROL
     Indication: Product used for unknown indication
     Dosage: 100/6 MICROGRAMS
     Route: 055
     Dates: start: 20220512
  11. CITALOPRAM CINFA [Concomitant]
     Indication: Product used for unknown indication
     Route: 048
     Dates: start: 20220217
  12. IRBESARTAN/HIDROCLOROTIAZIDA NORMON [Concomitant]
     Indication: Hypertension
     Dosage: 150/12.5 MG
     Route: 048
     Dates: start: 20120620

REACTIONS (1)
  - Muscle rupture [Recovering/Resolving]

NARRATIVE: CASE EVENT DATE: 20220821
